FAERS Safety Report 5942179-6 (Version None)
Quarter: 2008Q4

REPORT INFORMATION
  Report Type: 
  Country: None (occurrence: None)
  Receive Date: 20081105
  Receipt Date: 20070601
  Transmission Date: 20090506
  Serious: Yes (Hospitalization)
  Sender: FDA-Public Use
  Company Number: US-ASTRAZENECA-2006UW24971

PATIENT
  Age: 27207 Day
  Sex: Female
  Weight: 100.7 kg

DRUGS (25)
  1. SEROQUEL [Suspect]
     Indication: BIPOLAR I DISORDER
     Route: 048
     Dates: start: 20040217, end: 20040601
  2. AMITRIPTYLINE HCL [Concomitant]
     Dates: start: 20020101
  3. ATENOLOL [Concomitant]
     Dates: start: 20020101, end: 20030101
  4. MOBIC [Concomitant]
     Dates: start: 20020101
  5. ZANAFLEX [Concomitant]
     Dates: start: 20020101
  6. NEXIUM [Concomitant]
     Dates: start: 20020101
  7. ZOCOR [Concomitant]
     Dates: start: 20030101
  8. PROTONIX [Concomitant]
     Dates: start: 20030101
  9. MSM [Concomitant]
     Route: 048
     Dates: start: 20030101
  10. MORPHINE SULFATE INJ [Concomitant]
  11. LEVOXYL [Concomitant]
     Dates: start: 20030101
  12. LEXAPRO [Concomitant]
     Route: 048
     Dates: start: 20030528
  13. NEURONTIN [Concomitant]
     Dates: start: 20030616, end: 20070820
  14. CRESTOR [Concomitant]
     Dates: start: 20040101
  15. REGLAN [Concomitant]
     Dates: start: 20040201
  16. LITHIUM [Concomitant]
     Dates: start: 20040204, end: 20060224
  17. DEPAKOTE [Concomitant]
  18. TRAMADOL HCL [Concomitant]
     Dates: start: 20040101
  19. ROXICET [Concomitant]
  20. TYLENOL W/ CODEINE NO. 3 [Concomitant]
  21. XANAX [Concomitant]
     Route: 048
  22. AMBIEN [Concomitant]
     Dates: start: 20060101
  23. VICODIN [Concomitant]
  24. LORATADINE [Concomitant]
  25. DARVOCET [Concomitant]
     Dosage: 1 TO 2 TABLETS EVERY 4-6 HOURS
     Route: 048

REACTIONS (8)
  - ANAEMIA [None]
  - DIVERTICULUM [None]
  - FALL [None]
  - JOINT DISLOCATION [None]
  - MALNUTRITION [None]
  - MONONEURITIS [None]
  - RHABDOMYOLYSIS [None]
  - URINARY TRACT INFECTION [None]
